FAERS Safety Report 19805273 (Version 2)
Quarter: 2021Q3

REPORT INFORMATION
  Report Type: Spontaneous
  Country: US (occurrence: US)
  Receive Date: 20210909
  Receipt Date: 20210920
  Transmission Date: 20211014
  Serious: Yes (Other)
  Sender: FDA-Public Use
  Company Number: US-DRREDDYS-LIT/USA/21/0139806

PATIENT
  Age: 52 Year
  Sex: Female

DRUGS (2)
  1. TIZANIDINE HYDROCHLORIDE. [Suspect]
     Active Substance: TIZANIDINE HYDROCHLORIDE
     Indication: MUSCLE SPASMS
  2. TIZANIDINE HYDROCHLORIDE. [Suspect]
     Active Substance: TIZANIDINE HYDROCHLORIDE
     Dosage: SHE TOOK ALL 8MG AT NIGHT

REACTIONS (5)
  - Hypotension [Recovered/Resolved]
  - Withdrawal hypertension [Recovered/Resolved]
  - Somnolence [Unknown]
  - Intentional product misuse [Unknown]
  - Syncope [Recovered/Resolved]
